FAERS Safety Report 5899942-X (Version None)
Quarter: 2008Q3

REPORT INFORMATION
  Report Type: 
  Country: None (occurrence: None)
  Receive Date: 20080926
  Receipt Date: 20080919
  Transmission Date: 20090109
  Serious: Yes (Hospitalization)
  Sender: FDA-Public Use
  Company Number: A0749334A

PATIENT
  Age: 49 Year
  Sex: Female
  Weight: 127.3 kg

DRUGS (8)
  1. AVANDIA [Suspect]
     Indication: DIABETES MELLITUS
     Dosage: 4MG PER DAY
     Route: 048
     Dates: start: 20060301, end: 20060701
  2. INSULIN [Concomitant]
  3. HYDROCHLOROTHIAZIDE [Concomitant]
  4. HYZAAR [Concomitant]
  5. ZOCOR [Concomitant]
  6. LEXAPRO [Concomitant]
  7. TEGRETOL [Concomitant]
  8. ABILIFY [Concomitant]

REACTIONS (4)
  - ARRHYTHMIA [None]
  - CARDIAC FAILURE CONGESTIVE [None]
  - HEART INJURY [None]
  - MYOCARDIAL INFARCTION [None]
